FAERS Safety Report 7693585-3 (Version None)
Quarter: 2011Q3

REPORT INFORMATION
  Report Type: 
  Country: None (occurrence: None)
  Receive Date: 20110819
  Receipt Date: 20110810
  Transmission Date: 20111222
  Serious: Yes (Other)
  Sender: FDA-Public Use
  Company Number: PHFR2011GB04743

PATIENT
  Sex: Male

DRUGS (2)
  1. CLOZAPINE [Suspect]
     Indication: SCHIZOPHRENIA
     Route: 048
     Dates: start: 20040430
  2. SIMVASTATIN [Concomitant]

REACTIONS (6)
  - ACNE [None]
  - WEIGHT INCREASED [None]
  - BACK PAIN [None]
  - SLEEP APNOEA SYNDROME [None]
  - DYSPNOEA [None]
  - HYPERPHAGIA [None]
